FAERS Safety Report 7990685-5 (Version None)
Quarter: 2011Q4

REPORT INFORMATION
  Report Type: 
  Country: None (occurrence: None)
  Receive Date: 20111219
  Receipt Date: 20111212
  Transmission Date: 20120403
  Serious: Yes (Other)
  Sender: FDA-Public Use
  Company Number: US-B.I. PHARMACEUTICALS,INC./RIDGEFIELD-2011-EU-01035GD

PATIENT
  Age: 11 Year
  Sex: Female

DRUGS (4)
  1. ASPIRIN [Suspect]
     Indication: ANTIPLATELET THERAPY
     Dosage: 2-10 MG/KG/MIN
  2. HEPARIN [Suspect]
     Indication: ANTICOAGULANT THERAPY
     Dosage: ADJUSTED TO MAINTAIN A NORMOCOAGULABLE THROMBOELASTOGRAPHY
  3. DIPYRIDAMOLE [Suspect]
     Indication: ANTIPLATELET THERAPY
     Dosage: 400 MG
  4. PENTOXIFYLLINE [Suspect]
     Dosage: 1200 MG
     Route: 048

REACTIONS (2)
  - GASTROINTESTINAL HAEMORRHAGE [None]
  - CARDIAC TAMPONADE [None]
